FAERS Safety Report 13246242 (Version 2)
Quarter: 2017Q2

REPORT INFORMATION
  Report Type: Report from Study
  Country: None (occurrence: CA)
  Receive Date: 20170217
  Receipt Date: 20170411
  Transmission Date: 20170830
  Serious: Yes (Other)
  Sender: FDA-Public Use
  Company Number: CA-ABBVIE-17P-028-1877526-00

PATIENT
  Sex: Female
  Weight: 84.4 kg

DRUGS (1)
  1. HUMIRA [Suspect]
     Active Substance: ADALIMUMAB
     Indication: CROHN^S DISEASE
     Route: 058
     Dates: start: 20110603, end: 20170209

REACTIONS (2)
  - Intestinal obstruction [Not Recovered/Not Resolved]
  - Injection site pain [Not Recovered/Not Resolved]
